FAERS Safety Report 7323687-2 (Version None)
Quarter: 2011Q1

REPORT INFORMATION
  Report Type: 
  Country: None (occurrence: None)
  Receive Date: 20110301
  Receipt Date: 20100830
  Transmission Date: 20110831
  Serious: Yes (Other)
  Sender: FDA-Public Use
  Company Number: US-BAYER-201026145NA

PATIENT
  Sex: Female
  Weight: 81.633 kg

DRUGS (7)
  1. XANAX [Concomitant]
     Indication: ANXIETY
     Dosage: 0.5 MG, QD
     Dates: start: 20091101
  2. BETA BLOCKING AGENTS [Concomitant]
  3. YAZ [Suspect]
     Indication: CONTRACEPTION
     Dosage: UNK UNK, QD
     Route: 048
     Dates: start: 20060501, end: 20091101
  4. TOPROL-XL [Concomitant]
     Indication: PALPITATIONS
     Dosage: 50 MG, QD
     Dates: start: 20091101
  5. LEXAPRO [Concomitant]
  6. VALIUM [Concomitant]
     Indication: ANXIETY
  7. PHENERGAN [Concomitant]

REACTIONS (8)
  - ABDOMINAL PAIN UPPER [None]
  - NAUSEA [None]
  - CHOLELITHIASIS [None]
  - DYSPEPSIA [None]
  - BACK PAIN [None]
  - VOMITING [None]
  - BILE DUCT STONE [None]
  - CHOLECYSTITIS CHRONIC [None]
